FAERS Safety Report 4423870-X (Version None)
Quarter: 2004Q3

REPORT INFORMATION
  Report Type: 
  Country: None (occurrence: None)
  Receive Date: 20040715
  Receipt Date: 20040205
  Transmission Date: 20050211
  Serious: Yes (Hospitalization, Other)
  Sender: FDA-Public Use
  Company Number: 2004197717US

PATIENT
  Age: 48 Year
  Sex: Male

DRUGS (5)
  1. CELEBREX [Suspect]
     Dosage: 2 SEPARATE DOSES
     Dates: start: 20031201
  2. NAFCILLIN (NAFCILLIN) [Concomitant]
  3. REMERON [Concomitant]
  4. VICODIN [Concomitant]
  5. LOTENSIN [Concomitant]

REACTIONS (1)
  - RENAL FAILURE [None]
